FAERS Safety Report 7109612-8 (Version None)
Quarter: 2010Q4

REPORT INFORMATION
  Report Type: 
  Country: None (occurrence: None)
  Receive Date: 20101118
  Receipt Date: 20090806
  Transmission Date: 20110411
  Serious: No
  Sender: FDA-Public Use
  Company Number: 2009BI024848

PATIENT
  Age: 50 Year
  Sex: Male

DRUGS (1)
  1. TYSABRI [Suspect]
     Indication: MULTIPLE SCLEROSIS
     Route: 042
     Dates: start: 20081007

REACTIONS (4)
  - GAIT DISTURBANCE [None]
  - MUSCULAR WEAKNESS [None]
  - MYOPIA [None]
  - TREMOR [None]
